FAERS Safety Report 11409836 (Version 1)
Quarter: 2015Q3

REPORT INFORMATION
  Report Type: Spontaneous
  Country: US (occurrence: None)
  Receive Date: 20150820
  Receipt Date: 20150820
  Transmission Date: 20151125
  Serious: Yes (Hospitalization, Other)
  Sender: FDA-Public Use
  Company Number: None

PATIENT
  Age: 56 Year
  Sex: Male
  Weight: 72.58 kg

DRUGS (2)
  1. ZIPRAZIDONE 60 MG [Suspect]
     Active Substance: ZIPRASIDONE
     Indication: AGGRESSION
     Dosage: 60 MG, BID, PO?GREATER THAN 6 YEARS
     Route: 048
  2. FLUVOXAMINE 150 MG [Suspect]
     Active Substance: FLUVOXAMINE
     Indication: AFFECTIVE DISORDER
     Route: 048
     Dates: start: 20150301

REACTIONS (9)
  - Anxiety [None]
  - Decreased appetite [None]
  - Hyperhidrosis [None]
  - Pyrexia [None]
  - Flushing [None]
  - Confusional state [None]
  - Irritability [None]
  - Tremor [None]
  - Obsessive-compulsive disorder [None]

NARRATIVE: CASE EVENT DATE: 20150701
